FAERS Safety Report 12595073 (Version 1)
Quarter: 2016Q3

REPORT INFORMATION
  Report Type: Spontaneous
  Country: US (occurrence: US)
  Receive Date: 20160726
  Receipt Date: 20160726
  Transmission Date: 20161109
  Serious: Yes (Life-Threatening, Other)
  Sender: FDA-Public Use
  Company Number: US-MYLANLABS-2016M1030400

PATIENT

DRUGS (5)
  1. LIDOCAINE. [Concomitant]
     Active Substance: LIDOCAINE
     Indication: SPINAL ANAESTHESIA
     Dosage: UNK
     Route: 050
  2. ONDANSETRON [Suspect]
     Active Substance: ONDANSETRON
     Indication: VOMITING
     Dosage: 4MG; RE-CHALLENGED AT AN UNKNOWN DOSE
     Route: 042
  3. INDOMETACIN [Concomitant]
     Active Substance: INDOMETHACIN
     Dosage: 50MG
     Route: 048
  4. MORPHINE [Concomitant]
     Active Substance: MORPHINE
     Indication: PAIN
     Dosage: 5MG
     Route: 042
  5. ONDANSETRON [Suspect]
     Active Substance: ONDANSETRON
     Indication: NAUSEA
     Dosage: 4MG; RE-CHALLENGED AT AN UNKNOWN DOSE
     Route: 042

REACTIONS (3)
  - Bradycardia [Recovered/Resolved]
  - Maternal exposure during pregnancy [Unknown]
  - Cardiac arrest [Recovered/Resolved]
